FAERS Safety Report 7507964-8 (Version None)
Quarter: 2011Q2

REPORT INFORMATION
  Report Type: 
  Country: None (occurrence: None)
  Receive Date: 20110527
  Receipt Date: 20110408
  Transmission Date: 20111010
  Serious: Yes (Other)
  Sender: FDA-Public Use
  Company Number: DE-CELGENEUS-062-50794-11041071

PATIENT
  Age: 33 Year
  Sex: Female

DRUGS (11)
  1. ACYCLOVIR [Concomitant]
     Route: 065
  2. KALINOR [Concomitant]
     Route: 065
  3. MAGNESIUM SULFATE [Concomitant]
     Route: 065
  4. CALCILAC [Concomitant]
     Route: 065
  5. ARTELAC [Concomitant]
     Route: 065
  6. VIDAZA [Suspect]
     Route: 050
     Dates: start: 20110106
  7. NEXIUM [Concomitant]
     Route: 065
  8. VIDISIC [Concomitant]
     Route: 065
  9. NEULASTA [Concomitant]
     Route: 065
  10. COTRIM [Concomitant]
     Route: 065
  11. DEXAMETHASONE [Concomitant]
     Route: 065

REACTIONS (5)
  - LEUKOPENIA [None]
  - ACUTE GRAFT VERSUS HOST DISEASE IN LIVER [None]
  - ACUTE GRAFT VERSUS HOST DISEASE IN INTESTINE [None]
  - ACUTE GRAFT VERSUS HOST DISEASE IN SKIN [None]
  - ORAL HERPES [None]
